FAERS Safety Report 23894782 (Version 1)
Quarter: 2024Q2

REPORT INFORMATION
  Report Type: Spontaneous
  Country: FR (occurrence: FR)
  Receive Date: 20240524
  Receipt Date: 20240524
  Transmission Date: 20240716
  Serious: Yes (Other)
  Sender: FDA-Public Use
  Company Number: FR-GRUNENTHAL-2024-120262

PATIENT
  Age: 61 Year
  Sex: Female
  Weight: 87 kg

DRUGS (3)
  1. QUTENZA [Suspect]
     Active Substance: CAPSAICIN
     Indication: Notalgia paraesthetica
     Dosage: 1 DOSAGE FORM, ONCE
     Route: 003
     Dates: start: 20240513
  2. EBASTINE [Concomitant]
     Active Substance: EBASTINE
     Dosage: 1 DOSAGE FORM, 1/DAY
     Route: 065
     Dates: start: 2023
  3. XOLAIR [Concomitant]
     Active Substance: OMALIZUMAB
     Dosage: UNK
     Route: 065

REACTIONS (3)
  - Application site pruritus [Recovered/Resolved]
  - Application site pain [Recovered/Resolved]
  - Application site hyperaesthesia [Recovered/Resolved]

NARRATIVE: CASE EVENT DATE: 20240513
